FAERS Safety Report 17829403 (Version 1)
Quarter: 2020Q2

REPORT INFORMATION
  Report Type: Report from Study
  Country: US (occurrence: US)
  Receive Date: 20200527
  Receipt Date: 20200527
  Transmission Date: 20200714
  Serious: Yes (Other)
  Sender: FDA-Public Use
  Company Number: US-PFIZER INC-2020203227

PATIENT
  Age: 6 Year
  Sex: Male

DRUGS (2)
  1. METHOTREXATE SODIUM. [Suspect]
     Active Substance: METHOTREXATE SODIUM
     Indication: ACUTE LYMPHOCYTIC LEUKAEMIA
     Dosage: UNK, CYCLIC (5G/M2)
  2. DASATINIB. [Suspect]
     Active Substance: DASATINIB
     Dosage: 60 MG/M2, 4X/DAY (1.5 H AFTER START OF MTX INFUSION)

REACTIONS (3)
  - Mucosal inflammation [Unknown]
  - Acute kidney injury [Unknown]
  - Pleural effusion [Unknown]
